FAERS Safety Report 9134805 (Version 3)
Quarter: 2020Q1

REPORT INFORMATION
  Report Type: Spontaneous
  Country: FR (occurrence: FR)
  Receive Date: 20130304
  Receipt Date: 20200309
  Transmission Date: 20200409
  Serious: Yes (Hospitalization)
  Sender: FDA-Public Use
  Company Number: FR-VERTEX PHARMACEUTICALS INC.-2013-002914

PATIENT
  Age: 36 Year
  Sex: Male

DRUGS (15)
  1. BRICANYL [Concomitant]
     Active Substance: TERBUTALINE SULFATE
     Dosage: 2 DF, QD
  2. VENTOLINE [Concomitant]
     Active Substance: ALBUTEROL
     Dosage: 2 DF, QID
  3. TOCO [Concomitant]
     Active Substance: .ALPHA.-TOCOPHEROL ACETATE, D-
     Dosage: 2 DF, QD
  4. INEXIUM [Concomitant]
     Active Substance: ESOMEPRAZOLE
     Dosage: 40 MG, QD
  5. KALYDECO [Suspect]
     Active Substance: IVACAFTOR
     Indication: CYSTIC FIBROSIS
     Dosage: 150 MG, BID
     Route: 048
     Dates: start: 20120524
  6. SERETIDE [Concomitant]
     Active Substance: FLUTICASONE PROPIONATE\SALMETEROL XINAFOATE
     Dosage: 2 DF, BID
  7. CREON [Concomitant]
     Active Substance: PANCRELIPASE AMYLASE\PANCRELIPASE LIPASE\PANCRELIPASE PROTEASE
     Dosage: UNK, QD
  8. ZITHROMAX [Concomitant]
     Active Substance: AZITHROMYCIN DIHYDRATE
     Dosage: 1 DF, QD
  9. STEROGYL [Concomitant]
     Active Substance: ERGOCALCIFEROL
     Dosage: UNK, QD
  10. AZACTAM [Concomitant]
     Active Substance: AZTREONAM
     Dosage: 8 G, QD
  11. ATROVENT [Concomitant]
     Active Substance: IPRATROPIUM BROMIDE
     Dosage: 2 DF, QD
  12. A 313 [Concomitant]
     Active Substance: RETINOL
     Dosage: 2 DF, QD
  13. DELURSAN [Concomitant]
     Active Substance: URSODIOL
     Dosage: 3 DF, QD
  14. EFFEXOR [Concomitant]
     Active Substance: VENLAFAXINE HYDROCHLORIDE
     Dosage: 75 MG, QD
  15. NEBCINE [Concomitant]
     Active Substance: TOBRAMYCIN
     Dosage: 500 MG, QD

REACTIONS (1)
  - Atrial fibrillation [Recovered/Resolved]

NARRATIVE: CASE EVENT DATE: 20130225
